FAERS Safety Report 8691201 (Version 3)
Quarter: 2013Q2

REPORT INFORMATION
  Report Type: Spontaneous
  Country: US (occurrence: US)
  Receive Date: 20120730
  Receipt Date: 20130422
  Transmission Date: 20140414
  Serious: Yes (Hospitalization)
  Sender: FDA-Public Use
  Company Number: US-BAYER-2012-072237

PATIENT
  Age: 26 Year
  Sex: Female
  Weight: 110 kg

DRUGS (11)
  1. YAZ [Suspect]
     Dosage: UNK
     Dates: start: 200806, end: 200808
  2. VITAMINE C [Concomitant]
     Dosage: ON AND OFF
     Dates: start: 2002, end: 2012
  3. BACITRACIN [Concomitant]
     Dosage: UNK
     Dates: start: 20080509
  4. MOTRIN [Concomitant]
     Dosage: UNK UNK, PRN
     Route: 048
     Dates: start: 20080509
  5. KEFLEX [Concomitant]
     Dosage: UNK UNK, TID
     Route: 048
     Dates: start: 20080509
  6. IBUPROFEN [Concomitant]
     Dosage: UNK
     Route: 048
     Dates: start: 20080509
  7. NORCO [Concomitant]
     Dosage: UNK
     Route: 048
     Dates: start: 20080821
  8. LASIX [Concomitant]
     Dosage: UNK
     Route: 048
     Dates: start: 20080821
  9. VICODIN [Concomitant]
  10. REGLAN [Concomitant]
  11. PLAVIX [Concomitant]
     Indication: PROPHYLAXIS

REACTIONS (3)
  - Deep vein thrombosis [None]
  - Local swelling [None]
  - Local swelling [None]
